FAERS Safety Report 8285691-X (Version None)
Quarter: 2012Q2

REPORT INFORMATION
  Report Type: 
  Country: None (occurrence: None)
  Receive Date: 20120413
  Receipt Date: 20120403
  Transmission Date: 20120825
  Serious: Yes (Hospitalization)
  Sender: FDA-Public Use
  Company Number: IE-BAXTER-2012BH006229

PATIENT
  Age: 54 Year
  Sex: Male

DRUGS (16)
  1. NEXIUM [Concomitant]
     Route: 048
  2. BISOPROLOL FUMARATE [Concomitant]
     Route: 048
  3. GLUCOPHAGE [Concomitant]
     Route: 048
  4. SINGULAIR [Concomitant]
     Route: 048
  5. LYRICA [Concomitant]
     Route: 048
  6. CODALAX [Concomitant]
     Route: 048
  7. FLUTICASONE PROPIONATE/SALMETEROL [Concomitant]
  8. XANAX [Concomitant]
     Route: 048
  9. PARALIEF [Concomitant]
     Route: 048
  10. FYBOGEL [Concomitant]
     Route: 048
  11. AVELOX [Concomitant]
     Route: 048
  12. TRAMADOL HCL [Concomitant]
     Route: 065
  13. DIAMICRON [Concomitant]
     Route: 048
  14. KIOVIG [Suspect]
     Route: 042
     Dates: start: 20120208, end: 20120208
  15. LEXAPRO [Concomitant]
     Route: 048
  16. FENOFIBRATE [Concomitant]
     Route: 048

REACTIONS (3)
  - OXYGEN SATURATION DECREASED [None]
  - ABDOMINAL PAIN [None]
  - ABDOMINAL DISTENSION [None]
